FAERS Safety Report 10911056 (Version 1)
Quarter: 2015Q1

REPORT INFORMATION
  Report Type: Spontaneous
  Country: US (occurrence: US)
  Receive Date: 20150312
  Receipt Date: 20150312
  Transmission Date: 20150721
  Serious: Yes (Hospitalization, Other)
  Sender: FDA-Public Use
  Company Number: US-GLAXOSMITHKLINE-US2015GSK032019

PATIENT
  Age: 24 Year
  Sex: Female

DRUGS (4)
  1. COCAINE [Suspect]
     Active Substance: COCAINE
     Indication: DRUG ABUSE
     Dosage: UNK
  2. ARIPIPRAZOLE. [Suspect]
     Active Substance: ARIPIPRAZOLE
     Indication: BIPOLAR DISORDER
     Dosage: 80 MG, SINGLE
     Route: 048
  3. LAMOTRIGINE. [Suspect]
     Active Substance: LAMOTRIGINE
     Indication: BIPOLAR DISORDER
     Dosage: 4 G, SINGLE
     Route: 048
  4. CODEINE [Concomitant]
     Active Substance: CODEINE

REACTIONS (11)
  - Dizziness [Recovered/Resolved]
  - Serotonin syndrome [Unknown]
  - Feeling jittery [Recovered/Resolved]
  - Nystagmus [Recovered/Resolved]
  - Intentional overdose [Unknown]
  - Hyperhidrosis [Recovered/Resolved]
  - Tachycardia [Recovered/Resolved]
  - Hyperreflexia [Recovered/Resolved]
  - Hepatic enzyme increased [Recovered/Resolved]
  - Clonus [Recovered/Resolved]
  - Nausea [Recovered/Resolved]
